FAERS Safety Report 9813083 (Version 1)
Quarter: 2014Q1

REPORT INFORMATION
  Report Type: Spontaneous
  Country: FR (occurrence: None)
  Receive Date: 20140109
  Receipt Date: 20140109
  Transmission Date: 20141002
  Serious: Yes (Hospitalization)
  Sender: FDA-Public Use
  Company Number: SYM-2013-14473

PATIENT
  Age: 87 Year
  Sex: Female

DRUGS (19)
  1. FLAGYL [Suspect]
     Indication: CLOSTRIDIUM DIFFICILE INFECTION
     Route: 048
     Dates: start: 20131007, end: 20131021
  2. CETIRIZINE [Suspect]
     Indication: PRURITUS
     Dosage: 10 MG, DAILY, ORAL
     Route: 048
     Dates: start: 20130924, end: 20131014
  3. AMLOR [Suspect]
     Indication: HYPERTENSION
     Route: 048
     Dates: start: 20131017, end: 20131024
  4. HEPARIN SODIUM [Suspect]
     Indication: PROPHYLAXIS
     Dosage: 9000 IU , INTRAVENOUS (NOT OTHERWISE SPECIFIED)
  5. CALCIPARINE(HEPARIN CALCIUM)(HEPARIN CALCIUN [Concomitant]
  6. DOLIPRANE(PARACETAMOL)(PARACETAMOL) [Concomitant]
  7. LOVENOX(ENOXAPARIN SODIUM)(ENOXAPARIN SODIUN [Concomitant]
  8. AERIUS(DESLORATADINE)(DESLORATADINE) [Concomitant]
  9. ALLOPURINOL(ALLOPURINOL)(ALLOPURINOL) [Concomitant]
  10. ICAZ(ISRADIPINE)(ISRADIPINE) [Concomitant]
  11. ALISKIREN(ALISKIREN)(ALISKIREN) [Concomitant]
  12. FUROSEMIDE [Concomitant]
  13. MONOCRIXO(TRAMADOL HYDROCHLORIDE) (TRAMADOL HYDROCHLORIDE) [Concomitant]
  14. ATARAX(HYDROXYZINE)(HYDROXYZINE) [Concomitant]
  15. NORSET(MIRTAZAPINE)(MIRTAZAPINE) [Concomitant]
  16. COLCHICINE(COLCHICINE)(COLCHICINE) [Concomitant]
  17. STILNOX(ZOLPIDEM TARTRATE)(ZOLPIDEM TARTRATE) [Concomitant]
  18. ARIXTRA(FONDAPARINUX SODIUM)(FONDAPARINUX SODIUM) [Concomitant]
  19. PYOSTACINE(PRISTINAMYCIN)(PRISTINAMYCIN) [Concomitant]

REACTIONS (4)
  - Thrombocytopenia [None]
  - Metabolic acidosis [None]
  - Renal failure [None]
  - Heparin-induced thrombocytopenia [None]
